FAERS Safety Report 9343250 (Version 1)
Quarter: 2013Q2

REPORT INFORMATION
  Report Type: Report from Study
  Country: CA (occurrence: CA)
  Receive Date: 20130611
  Receipt Date: 20130611
  Transmission Date: 20140414
  Serious: Yes (Life-Threatening, Hospitalization)
  Sender: FDA-Public Use
  Company Number: CA-BAXTER-2013BAX020819

PATIENT
  Age: 63 Year
  Sex: Female

DRUGS (47)
  1. PROCYTOX (CYCLOPHOSPHAMIDE) 1000MG/VIAL [Suspect]
     Indication: DIFFUSE LARGE B-CELL LYMPHOMA
     Route: 042
     Dates: start: 20120918
  2. PREDNISOLONE [Suspect]
     Indication: DIFFUSE LARGE B-CELL LYMPHOMA
     Route: 065
     Dates: start: 20120918
  3. PREDNISOLONE [Suspect]
     Route: 065
     Dates: start: 20121125
  4. DOXORUBICIN [Suspect]
     Indication: DIFFUSE LARGE B-CELL LYMPHOMA
     Route: 042
     Dates: start: 20120918
  5. VINCRISTINE [Suspect]
     Indication: DIFFUSE LARGE B-CELL LYMPHOMA
     Route: 042
     Dates: start: 20120918
  6. VAGIFEM [Concomitant]
     Indication: PRODUCT USED FOR UNKNOWN INDICATION
     Route: 065
     Dates: start: 2010
  7. VESICARE [Concomitant]
     Indication: HYPERTONIC BLADDER
     Route: 065
     Dates: start: 2010
  8. AMITRIPTYLINE HYDROCHLORIDE [Concomitant]
     Indication: SLEEP DISORDER
     Route: 065
  9. CRESTOR [Concomitant]
     Indication: HYPERLIPIDAEMIA
     Route: 065
  10. BACLOFEN [Concomitant]
     Indication: MUSCLE SPASTICITY
     Route: 065
  11. CELEBREX [Concomitant]
     Indication: OSTEOARTHRITIS
     Route: 065
  12. ACTONEL [Concomitant]
     Indication: OSTEOARTHRITIS
     Route: 065
  13. DALTEPARIN [Concomitant]
     Indication: PROPHYLAXIS
     Route: 065
  14. GABAPENTIN [Concomitant]
     Indication: NEURALGIA
     Route: 065
  15. SENOKOT [Concomitant]
     Indication: CONSTIPATION
     Route: 065
     Dates: start: 20120915
  16. DILAUDID [Concomitant]
     Indication: PAIN
     Route: 065
     Dates: start: 20120917
  17. DIOVOL [Concomitant]
     Indication: DYSPEPSIA
     Route: 065
  18. SENNA-S [Concomitant]
     Indication: CONSTIPATION
     Route: 065
  19. POLYETHYLENE GLYCOL [Concomitant]
     Indication: CONSTIPATION
     Route: 065
     Dates: start: 20120916
  20. BENADRYL [Concomitant]
     Indication: PREMEDICATION
     Route: 065
     Dates: start: 20120918
  21. TYLENOL [Concomitant]
     Indication: PREMEDICATION
     Route: 065
     Dates: start: 20120918
  22. ALUMINUM HYDROXIDE/MAGNESIUM CARBONATE [Concomitant]
     Indication: DYSPEPSIA
     Route: 065
     Dates: start: 20120919
  23. FERAMAX [Concomitant]
     Indication: PRODUCT USED FOR UNKNOWN INDICATION
     Route: 065
     Dates: start: 20120903
  24. DILAUDID [Concomitant]
     Indication: PAIN
     Route: 065
     Dates: start: 20120907
  25. ACYCLOVIR [Concomitant]
     Indication: ORAL HERPES
     Route: 065
     Dates: start: 20121008
  26. WARFARIN [Concomitant]
     Indication: DEEP VEIN THROMBOSIS
     Route: 065
     Dates: start: 20121007
  27. WARFARIN [Concomitant]
     Route: 065
     Dates: start: 20120930
  28. LACTULOSE [Concomitant]
     Indication: CONSTIPATION
     Route: 065
     Dates: start: 2012
  29. ONDANSETRON [Concomitant]
     Indication: PRODUCT USED FOR UNKNOWN INDICATION
     Route: 065
     Dates: start: 20120918
  30. DOCUSATE SODIUM [Concomitant]
     Indication: CONSTIPATION
     Route: 065
     Dates: start: 20121130
  31. SENNOSIDES [Concomitant]
     Indication: CONSTIPATION
     Route: 065
     Dates: start: 20121130, end: 20121202
  32. CHLORHEXIDINE GLUCONATE [Concomitant]
     Indication: PRODUCT USED FOR UNKNOWN INDICATION
     Route: 065
     Dates: start: 20121130, end: 20121201
  33. ZANTAC [Concomitant]
     Indication: SUPPORTIVE CARE
     Route: 065
     Dates: start: 20121130, end: 20121201
  34. ACYCLOVIR [Concomitant]
     Indication: HERPES SIMPLEX
     Route: 065
     Dates: start: 20121120
  35. DALTEPARIN [Concomitant]
     Indication: PRODUCT USED FOR UNKNOWN INDICATION
     Route: 065
     Dates: start: 20121130, end: 20121202
  36. KAOCHLOR [Concomitant]
     Indication: BLOOD POTASSIUM DECREASED
     Route: 065
     Dates: start: 20121201, end: 20121201
  37. POTASSIUM CHLORIDE [Concomitant]
     Indication: BLOOD POTASSIUM DECREASED
     Route: 065
     Dates: start: 20121130, end: 20121130
  38. MAGNESIUM SULFATE [Concomitant]
     Indication: BLOOD POTASSIUM DECREASED
     Route: 065
     Dates: start: 20121130, end: 20121130
  39. TRAZODONE HYDROCHLORIDE [Concomitant]
     Indication: INSOMNIA
     Route: 065
     Dates: start: 20121202, end: 20121202
  40. FRAGMIN [Concomitant]
     Indication: DEEP VEIN THROMBOSIS
     Route: 065
     Dates: start: 20121203
  41. ZOPICLONE [Concomitant]
     Indication: INSOMNIA
     Route: 065
     Dates: start: 20121203
  42. DIMENHYDRINATE [Concomitant]
     Indication: NAUSEA
     Route: 065
     Dates: start: 20121203, end: 20121203
  43. RED BLOOD CELLS [Concomitant]
     Indication: ANAEMIA
     Route: 065
     Dates: start: 20121202, end: 20121202
  44. RED BLOOD CELLS [Concomitant]
     Route: 065
     Dates: start: 20121202
  45. NOREPINEPHRINE [Concomitant]
     Indication: SUPPORTIVE CARE
     Route: 065
     Dates: start: 20121130, end: 20121130
  46. KETAMINE [Concomitant]
     Indication: SUPPORTIVE CARE
     Route: 065
     Dates: start: 20121130, end: 20121130
  47. ROCURONIUM [Concomitant]
     Indication: SUPPORTIVE CARE
     Route: 065
     Dates: start: 20121130, end: 20121130

REACTIONS (1)
  - Pneumonia [Recovered/Resolved]
